FAERS Safety Report 5712561-0 (Version None)
Quarter: 2008Q2

REPORT INFORMATION
  Report Type: 
  Country: None (occurrence: None)
  Receive Date: 20080422
  Receipt Date: 20080415
  Transmission Date: 20081010
  Serious: Yes (Hospitalization, Other)
  Sender: FDA-Public Use
  Company Number: AU-AVENTIS-200813448GDDC

PATIENT
  Age: 66 Year
  Sex: Female

DRUGS (1)
  1. LANTUS [Suspect]
     Route: 058
     Dates: start: 20080227

REACTIONS (2)
  - GASTRIC ULCER [None]
  - HIATUS HERNIA [None]
